FAERS Safety Report 19896767 (Version 1)
Quarter: 2021Q3

REPORT INFORMATION
  Report Type: Spontaneous
  Country: US (occurrence: US)
  Receive Date: 20210929
  Receipt Date: 20210929
  Transmission Date: 20211014
  Serious: No
  Sender: FDA-Public Use
  Company Number: US-OTSUKA-2020_021914

PATIENT
  Age: 60 Year
  Sex: Male

DRUGS (6)
  1. REXULTI [Suspect]
     Active Substance: BREXPIPRAZOLE
     Indication: PSYCHOTIC DISORDER
     Dosage: 1 MG, AT NIGHT
     Route: 065
     Dates: start: 202008
  2. REXULTI [Suspect]
     Active Substance: BREXPIPRAZOLE
     Indication: BIPOLAR DISORDER
     Dosage: 3 MG, AT NIGHT
     Route: 065
     Dates: start: 202008, end: 20200907
  3. RISPERDAL [Concomitant]
     Active Substance: RISPERIDONE
     Indication: PRODUCT USED FOR UNKNOWN INDICATION
     Dosage: 10 MG, UNK
     Route: 065
  4. VRAYLAR [Concomitant]
     Active Substance: CARIPRAZINE
     Indication: PSYCHOTIC DISORDER
     Dosage: UNK
     Route: 065
  5. DEPAKOTE [Concomitant]
     Active Substance: DIVALPROEX SODIUM
     Dosage: 2500 MG, UNK
     Route: 065
  6. DEPAKOTE [Concomitant]
     Active Substance: DIVALPROEX SODIUM
     Indication: PRODUCT USED FOR UNKNOWN INDICATION
     Dosage: UNK
     Route: 065

REACTIONS (7)
  - Irritability [Not Recovered/Not Resolved]
  - Anger [Not Recovered/Not Resolved]
  - Gambling [Not Recovered/Not Resolved]
  - Drug effective for unapproved indication [Unknown]
  - Obsessive-compulsive disorder [Unknown]
  - Insomnia [Not Recovered/Not Resolved]
  - Hypersexuality [Not Recovered/Not Resolved]

NARRATIVE: CASE EVENT DATE: 202008
